FAERS Safety Report 14415359 (Version 1)
Quarter: 2018Q1

REPORT INFORMATION
  Report Type: Spontaneous
  Country: US (occurrence: US)
  Receive Date: 20180121
  Receipt Date: 20180121
  Transmission Date: 20180509
  Serious: Yes (Other)
  Sender: FDA-Public Use
  Company Number: PHEH2018US001301

PATIENT
  Sex: Male

DRUGS (1)
  1. FEMARA [Suspect]
     Active Substance: LETROZOLE
     Indication: FOETAL EXPOSURE DURING PREGNANCY
     Dosage: MOTHER DOSE: 5 MG, UNK
     Route: 064

REACTIONS (5)
  - Anxiety [Unknown]
  - Pica [Unknown]
  - Foetal exposure during pregnancy [Unknown]
  - Autism spectrum disorder [Unknown]
  - Mitochondrial DNA duplication [Unknown]
